FAERS Safety Report 9414885 (Version 1)
Quarter: 2013Q3

REPORT INFORMATION
  Report Type: Spontaneous
  Country: US (occurrence: US)
  Receive Date: 20130723
  Receipt Date: 20130723
  Transmission Date: 20140515
  Serious: Yes (Other)
  Sender: FDA-Public Use
  Company Number: US-UCBSA-091733

PATIENT
  Sex: Female

DRUGS (4)
  1. CIMZIA [Suspect]
     Indication: RHEUMATOID ARTHRITIS
  2. ENBREL [Concomitant]
     Indication: RHEUMATOID ARTHRITIS
  3. HUMIRA [Concomitant]
     Indication: RHEUMATOID ARTHRITIS
  4. ORENCIA [Concomitant]
     Indication: RHEUMATOID ARTHRITIS

REACTIONS (5)
  - Staphylococcal infection [Unknown]
  - Kidney infection [Unknown]
  - Pneumonia [Unknown]
  - Immunosuppression [Unknown]
  - Stress [Unknown]
